FAERS Safety Report 24987425 (Version 1)
Quarter: 2025Q1

REPORT INFORMATION
  Report Type: Spontaneous
  Country: IT (occurrence: IT)
  Receive Date: 20250219
  Receipt Date: 20250219
  Transmission Date: 20250408
  Serious: Yes (Disabling, Other)
  Sender: NOVA LABORATORIES LIMITED
  Company Number: IT-Nova Laboratories Limited-2171415

PATIENT
  Age: 45 Year
  Sex: Female
  Weight: 67.00 kg

DRUGS (7)
  1. PURIXAN [Suspect]
     Active Substance: MERCAPTOPURINE
     Indication: Acute lymphocytic leukaemia
     Dates: start: 20241216, end: 20241225
  2. DARATUMUMAB [Suspect]
     Active Substance: DARATUMUMAB
     Dates: start: 20241216, end: 20241216
  3. CYCLOPHOSPHAMIDE [Suspect]
     Active Substance: CYCLOPHOSPHAMIDE
     Dates: start: 20241216, end: 20241216
  4. PEGASPARGASE [Suspect]
     Active Substance: PEGASPARGASE
     Dates: start: 20241223, end: 20241223
  5. DEXAMETHASONE [Suspect]
     Active Substance: DEXAMETHASONE
     Dates: start: 20241216, end: 20241220
  6. CYTARABINE [Suspect]
     Active Substance: CYTARABINE
     Dates: start: 20241217, end: 20241221
  7. IDARUBICIN [Suspect]
     Active Substance: IDARUBICIN
     Dates: start: 20241216, end: 20241216

REACTIONS (1)
  - Osteonecrosis [Not Recovered/Not Resolved]

NARRATIVE: CASE EVENT DATE: 20250120
